FAERS Safety Report 9848606 (Version 1)
Quarter: 2013Q4

REPORT INFORMATION
  Report Type: Spontaneous
  Country: US (occurrence: None)
  Receive Date: 20131224
  Receipt Date: 20131224
  Transmission Date: 20140711
  Serious: Yes (Hospitalization)
  Sender: FDA-Public Use
  Company Number: PHEH2013US013468

PATIENT
  Age: 33 Year
  Sex: Male

DRUGS (1)
  1. CLOZARIL (CLOZAPINE) UNKNOWN [Suspect]

REACTIONS (1)
  - White blood cell count increased [None]
